FAERS Safety Report 6615433-2 (Version None)
Quarter: 2010Q1

REPORT INFORMATION
  Report Type: 
  Country: None (occurrence: None)
  Receive Date: 20100305
  Receipt Date: 20091217
  Transmission Date: 20100710
  Serious: No
  Sender: FDA-Public Use
  Company Number: A0836312A

PATIENT
  Age: 75 Year
  Sex: Male

DRUGS (12)
  1. REQUIP [Suspect]
     Indication: RESTLESS LEGS SYNDROME
     Dosage: 1MG UNKNOWN
     Route: 048
     Dates: start: 20090101
  2. PRAVASTATIN [Concomitant]
  3. OXYBUTYNIN [Concomitant]
  4. COZAAR [Concomitant]
  5. VITAMIN D [Concomitant]
  6. FLOMAX [Concomitant]
  7. ADVAIR DISKUS 100/50 [Concomitant]
  8. NIACIN [Concomitant]
  9. PLAVIX [Concomitant]
  10. TYLENOL-500 [Concomitant]
  11. FLOMAX [Concomitant]
  12. CALCIUM [Concomitant]

REACTIONS (1)
  - OBSESSIVE-COMPULSIVE DISORDER [None]
